FAERS Safety Report 8785076 (Version 1)
Quarter: 2012Q4

REPORT INFORMATION
  Report Type: 
  Country: US (occurrence: US)
  Receive Date: 20120914
  Receipt Date: 20120914
  Transmission Date: 20130627
  Serious: Yes (Other)
  Sender: FDA-Public Use
  Company Number: US-SANOFI-AVENTIS-2012SA066757

PATIENT
  Sex: Male
  Weight: 60 kg

DRUGS (1)
  1. DDAVP NASAL SPRAY [Suspect]
     Indication: DIABETES INSIPIDUS
     Dosage: one spray intranasal bid
     Route: 045
     Dates: start: 2002, end: 2007

REACTIONS (3)
  - Fibrous dysplasia of bone [Not Recovered/Not Resolved]
  - Epistaxis [Recovered/Resolved]
  - Nasal cavity mass [Not Recovered/Not Resolved]
